FAERS Safety Report 8522720 (Version 3)
Quarter: 2013Q2

REPORT INFORMATION
  Report Type: Spontaneous
  Country: JP (occurrence: JP)
  Receive Date: 20120419
  Receipt Date: 20130610
  Transmission Date: 20140414
  Serious: Yes (Hospitalization)
  Sender: FDA-Public Use
  Company Number: JP-ELI_LILLY_AND_COMPANY-JP201111001672

PATIENT
  Age: 78 Year
  Sex: Female

DRUGS (2)
  1. FORTEO [Suspect]
     Dosage: UNK
     Route: 058
     Dates: start: 20111004, end: 20120312
  2. FORTEO [Suspect]
     Dosage: UNK
     Route: 058
     Dates: start: 20120517

REACTIONS (14)
  - Pain [Recovered/Resolved]
  - Nasopharyngitis [Recovered/Resolved]
  - Injection site bruising [Unknown]
  - White blood cell count increased [Unknown]
  - Abdominal distension [Unknown]
  - Rash [Unknown]
  - Pain in extremity [Unknown]
  - Eye inflammation [Recovered/Resolved]
  - Loose tooth [Unknown]
  - Bone pain [Not Recovered/Not Resolved]
  - Headache [Unknown]
  - Expired drug administered [Unknown]
  - Paraesthesia [Unknown]
  - Malaise [Not Recovered/Not Resolved]
